FAERS Safety Report 6193736-6 (Version None)
Quarter: 2009Q2

REPORT INFORMATION
  Report Type: 
  Country: None (occurrence: None)
  Receive Date: 20090518
  Receipt Date: 20090514
  Transmission Date: 20091009
  Serious: Yes (Other)
  Sender: FDA-Public Use
  Company Number: US-PFIZER INC-2009190599

PATIENT
  Sex: Female

DRUGS (2)
  1. ACCUPRIL [Suspect]
     Indication: HYPERTENSION
     Dosage: 20 MG, UNK
     Route: 048
  2. CARTIA XT [Concomitant]
     Dosage: UNK

REACTIONS (2)
  - DIABETES MELLITUS [None]
  - HYPERTENSION [None]
